FAERS Safety Report 12519947 (Version 4)
Quarter: 2016Q3

REPORT INFORMATION
  Report Type: Report from Study
  Country: CH (occurrence: CH)
  Receive Date: 20160630
  Receipt Date: 20160721
  Transmission Date: 20161109
  Serious: Yes (Other)
  Sender: FDA-Public Use
  Company Number: CH-BIOGEN-2016BI00257531

PATIENT
  Age: 56 Year
  Sex: Female

DRUGS (2)
  1. MINIRIN [Concomitant]
     Active Substance: DESMOPRESSIN ACETATE
     Dosage: 0.1 UG/ML AS NEEDED
  2. FAMPRIDINE [Suspect]
     Active Substance: DALFAMPRIDINE
     Indication: GAIT DISTURBANCE
     Route: 048

REACTIONS (6)
  - Dysplasia [Not Recovered/Not Resolved]
  - Constipation [Not Recovered/Not Resolved]
  - Large intestine polyp [Not Recovered/Not Resolved]
  - Abdominal pain [Not Recovered/Not Resolved]
  - Colon adenoma [Not Recovered/Not Resolved]
  - Colonoscopy [Not Recovered/Not Resolved]

NARRATIVE: CASE EVENT DATE: 20160321
